FAERS Safety Report 10344720 (Version 4)
Quarter: 2021Q1

REPORT INFORMATION
  Report Type: Spontaneous
  Country: US (occurrence: US)
  Receive Date: 20140728
  Receipt Date: 20210322
  Transmission Date: 20210419
  Serious: No
  Sender: FDA-Public Use
  Company Number: US-JNJFOC-20140715843

PATIENT
  Age: 12 Year
  Sex: Male

DRUGS (4)
  1. RISPERDAL [Suspect]
     Active Substance: RISPERIDONE
     Route: 048
     Dates: start: 20070919
  2. RISPERDAL [Suspect]
     Active Substance: RISPERIDONE
     Route: 048
     Dates: start: 20080729, end: 2008
  3. RISPERDAL [Suspect]
     Active Substance: RISPERIDONE
     Indication: ATTENTION DEFICIT HYPERACTIVITY DISORDER
     Route: 048
     Dates: start: 20061018, end: 20070516
  4. RISPERDAL [Suspect]
     Active Substance: RISPERIDONE
     Dosage: 0.25 AND 0.5 MG
     Route: 048
     Dates: start: 20070516

REACTIONS (6)
  - Drug ineffective for unapproved indication [Unknown]
  - Movement disorder [Unknown]
  - Emotional distress [Unknown]
  - Weight increased [Unknown]
  - Off label use [Unknown]
  - Gynaecomastia [Unknown]

NARRATIVE: CASE EVENT DATE: 20061018
